FAERS Safety Report 18465172 (Version 2)
Quarter: 2021Q1

REPORT INFORMATION
  Report Type: Spontaneous
  Country: US (occurrence: US)
  Receive Date: 20201105
  Receipt Date: 20210121
  Transmission Date: 20210419
  Serious: Yes (Hospitalization, Other)
  Sender: FDA-Public Use
  Company Number: US-SUN PHARMACEUTICAL INDUSTRIES LTD-2020R1-266191

PATIENT
  Age: 39 Year
  Sex: Male

DRUGS (1)
  1. ACETAMINOPHEN. [Suspect]
     Active Substance: ACETAMINOPHEN
     Indication: PRODUCT USED FOR UNKNOWN INDICATION
     Dosage: UNK (20 PILLS)
     Route: 065

REACTIONS (6)
  - Metabolic acidosis [Unknown]
  - Acute kidney injury [Unknown]
  - Coagulopathy [Unknown]
  - Intentional overdose [Unknown]
  - Suicide attempt [Unknown]
  - Acute hepatic failure [Recovering/Resolving]
